FAERS Safety Report 8489918-0 (Version None)
Quarter: 2012Q3

REPORT INFORMATION
  Report Type: 
  Country: None (occurrence: None)
  Receive Date: 20120705
  Receipt Date: 20120626
  Transmission Date: 20120928
  Serious: Yes (Hospitalization)
  Sender: FDA-Public Use
  Company Number: FR-SANOFI-AVENTIS-2012SA045440

PATIENT
  Age: 65 Year
  Sex: Male

DRUGS (6)
  1. TENORMIN [Suspect]
     Route: 048
  2. FENOFIBRATE [Suspect]
     Route: 048
  3. AMARYL [Suspect]
     Route: 065
  4. VALSARTAN/HYDROCHLOROTHIAZIDE [Suspect]
     Indication: HYPERTENSION
     Route: 048
  5. METFORMIN HCL [Suspect]
     Route: 048
  6. PLAVIX [Suspect]
     Route: 048

REACTIONS (1)
  - COLITIS [None]
